FAERS Safety Report 10787308 (Version 1)
Quarter: 2015Q1

REPORT INFORMATION
  Report Type: Spontaneous
  Country: US (occurrence: US)
  Receive Date: 20150211
  Receipt Date: 20150211
  Transmission Date: 20150721
  Serious: Yes (Other)
  Sender: FDA-Public Use
  Company Number: US-MYLANLABS-2015M1003154

PATIENT

DRUGS (1)
  1. ZONISAMIDE  CAPSULES, USP [Suspect]
     Active Substance: ZONISAMIDE
     Indication: SEIZURE
     Dosage: 300 MG, BID
     Route: 048
     Dates: start: 20150121, end: 20150130

REACTIONS (1)
  - Drug ineffective [Not Recovered/Not Resolved]

NARRATIVE: CASE EVENT DATE: 20150121
